FAERS Safety Report 6944771-9 (Version None)
Quarter: 2010Q3

REPORT INFORMATION
  Report Type: 
  Country: None (occurrence: None)
  Receive Date: 20100827
  Receipt Date: 20100813
  Transmission Date: 20110219
  Serious: Yes (Hospitalization, Other)
  Sender: FDA-Public Use
  Company Number: US-ELI_LILLY_AND_COMPANY-US201008006037

PATIENT
  Sex: Female

DRUGS (10)
  1. FORTEO [Suspect]
     Indication: OSTEOPOROSIS
     Dosage: 20 UG, DAILY (1/D)
  2. POTASSIUM [Concomitant]
  3. CALCIUM [Concomitant]
  4. CLONAZEPAM [Concomitant]
     Dosage: 0.5 MG, 2/D
  5. LORTAB [Concomitant]
     Dosage: 10 MG, UP TO 4 TIMES DAILY AS NEEDED
  6. TEMAZEPAM [Concomitant]
     Dosage: 30 MG, EACH EVENING
  7. ENALAPRIL [Concomitant]
     Dosage: 2.5 MG, 2/D
  8. FENTANYL CITRATE [Concomitant]
     Dosage: 50 UG, 3/D
     Route: 061
  9. BUSPIRONE HCL [Concomitant]
     Dosage: 15 MG, 2/D
  10. LASIX [Concomitant]
     Dosage: 40 MG, AS NEEDED

REACTIONS (2)
  - BACK PAIN [None]
  - SPINAL DISORDER [None]
